FAERS Safety Report 8936696 (Version 1)
Quarter: 2012Q4

REPORT INFORMATION
  Report Type: 
  Country: US (occurrence: US)
  Receive Date: 20121130
  Receipt Date: 20121130
  Transmission Date: 20130627
  Serious: Yes (Other)
  Sender: FDA-Public Use
  Company Number: US-JNJFOC-20121110925

PATIENT
  Age: 55 Year
  Sex: Female
  Weight: 70 kg

DRUGS (6)
  1. BENADRYL [Suspect]
     Indication: ERYTHEMA
     Route: 048
     Dates: start: 20120323
  2. BENADRYL [Suspect]
     Indication: PRURITUS
     Route: 048
     Dates: start: 20120323
  3. PEPCID [Suspect]
     Route: 065
  4. PEPCID [Suspect]
     Indication: HYPERSENSITIVITY
     Route: 065
     Dates: start: 20120324
  5. PREDNISONE [Suspect]
     Indication: HYPERSENSITIVITY
     Route: 048
     Dates: start: 20120324
  6. SULINDAC [Suspect]
     Indication: PLANTAR FASCIITIS
     Route: 048
     Dates: start: 20120323, end: 20120324

REACTIONS (13)
  - Burning sensation [Recovered/Resolved]
  - Pruritus [Recovered/Resolved]
  - Rash [Recovered/Resolved]
  - Pain [Recovered/Resolved]
  - Contusion [Recovered/Resolved]
  - Scar [Not Recovered/Not Resolved]
  - Insomnia [Recovered/Resolved]
  - Skin discolouration [Recovered/Resolved]
  - Anxiety [Recovered/Resolved]
  - Eyelid oedema [Recovered/Resolved]
  - Visual impairment [Not Recovered/Not Resolved]
  - Abnormal sensation in eye [Recovered/Resolved]
  - Condition aggravated [Unknown]
